FAERS Safety Report 20468059 (Version 1)
Quarter: 2022Q1

REPORT INFORMATION
  Report Type: Report from Study
  Country: US (occurrence: US)
  Receive Date: 20220214
  Receipt Date: 20220214
  Transmission Date: 20220423
  Serious: No
  Sender: FDA-Public Use
  Company Number: US-Ipsen Biopharmaceuticals, Inc.-2022-03436

PATIENT
  Sex: Male

DRUGS (1)
  1. SOMATULINE DEPOT [Suspect]
     Active Substance: LANREOTIDE ACETATE
     Indication: Carcinoid tumour of the gastrointestinal tract
     Dosage: 120 MG EVERY 4 WEEKS
     Route: 058
     Dates: start: 201907

REACTIONS (4)
  - Prostatic specific antigen increased [Recovering/Resolving]
  - Injection site pain [Recovering/Resolving]
  - Blood glucose increased [Not Recovered/Not Resolved]
  - Diarrhoea [Recovering/Resolving]
